FAERS Safety Report 5824765-7 (Version None)
Quarter: 2008Q3

REPORT INFORMATION
  Report Type: 
  Country: None (occurrence: None)
  Receive Date: 20080728
  Receipt Date: 20080701
  Transmission Date: 20090109
  Serious: Yes (Other)
  Sender: FDA-Public Use
  Company Number: US-AVENTIS-200814526US

PATIENT
  Age: 52 Year
  Sex: Female

DRUGS (7)
  1. CARAC [Suspect]
     Dosage: DOSE: 0.5%
     Route: 061
     Dates: start: 20080627
  2. PREMARIN [Concomitant]
     Dosage: DOSE: UNK
  3. NAPROXEN [Concomitant]
     Dosage: DOSE: UNK
  4. METOPROLOL SUCCINATE [Concomitant]
     Dosage: DOSE: UNK
  5. NEXIUM [Concomitant]
     Dosage: DOSE: UNK
  6. CLARINEX [Concomitant]
     Dosage: DOSE: UNK
  7. SINGULAIR [Concomitant]
     Dosage: DOSE: UNK

REACTIONS (10)
  - CHILLS [None]
  - DIZZINESS [None]
  - DYSSTASIA [None]
  - EYE IRRITATION [None]
  - LOSS OF CONSCIOUSNESS [None]
  - MALAISE [None]
  - OVERDOSE [None]
  - RETCHING [None]
  - VERTIGO [None]
  - VOMITING [None]
